FAERS Safety Report 19475074 (Version 2)
Quarter: 2021Q3

REPORT INFORMATION
  Report Type: Spontaneous
  Country: US (occurrence: US)
  Receive Date: 20210629
  Receipt Date: 20210715
  Transmission Date: 20211014
  Serious: Yes (Life-Threatening, Hospitalization)
  Sender: FDA-Public Use
  Company Number: US-GREER LABORATORIES, INC.-2113282

PATIENT
  Age: 68 Year
  Sex: Male
  Weight: 93.64 kg

DRUGS (16)
  1. STANDARDIZED MITE MIX DERMATOPHAGOIDES FARINAE AND DERMATOPHAGOIDES PT [Suspect]
     Active Substance: DERMATOPHAGOIDES FARINAE\DERMATOPHAGOIDES PTERONYSSINUS
     Route: 058
     Dates: start: 20180723
  2. POLLENS ? WEEDS AND GARDEN PLANTS, COCKLEBUR XANTHIUM STRUMARIUM [Suspect]
     Active Substance: XANTHIUM STRUMARIUM POLLEN
     Route: 058
     Dates: start: 20180723
  3. POLLENS ? WEEDS AND GARDEN PLANTS, DOG FENNEL EUPATORIUM CAPILLIFOLIUM [Suspect]
     Active Substance: EUPATORIUM CAPILLIFOLIUM POLLEN
     Indication: RHINITIS ALLERGIC
     Route: 058
     Dates: start: 20180723
  4. POLLENS ? TREES, BOXELDER/MAPLE MIX [Suspect]
     Active Substance: ACER NEGUNDO POLLEN\ACER RUBRUM POLLEN\ACER SACCHARUM POLLEN
     Route: 058
     Dates: start: 20180723
  5. POLLENS ? TREES, COTTONWOOD, COMMON POPULUS DELTOIDES [Suspect]
     Active Substance: POPULUS DELTOIDES POLLEN
     Route: 058
     Dates: start: 20180723
  6. POLLENS ? WEEDS AND GARDEN PLANTS, MARSHELDER, TRUE/ROUGH, IVA ANNUA [Suspect]
     Active Substance: IVA ANNUA POLLEN
     Route: 058
     Dates: start: 20180723
  7. POLLENS ? WEEDS AND GARDEN PLANTS, PIGWEED, ROUGH REDROOT AMARANTHUS RETROFLEXUS [Suspect]
     Active Substance: AMARANTHUS RETROFLEXUS POLLEN
     Route: 058
     Dates: start: 20180723
  8. POLLENS ? TREES, EASTERN OAK MIX [Suspect]
     Active Substance: QUERCUS ALBA POLLEN\QUERCUS RUBRA POLLEN\QUERCUS VELUTINA POLLEN
     Route: 058
     Dates: start: 20180723
  9. SORREL/DOCK MIX [Suspect]
     Active Substance: RUMEX ACETOSELLA WHOLE\RUMEX CRISPUS
     Route: 058
     Dates: start: 20180723
  10. POLLENS ? TREES, BIRCH, RED/RIVER, BETULA NIGRA [Suspect]
     Active Substance: BETULA NIGRA POLLEN
     Route: 058
     Dates: start: 20180723
  11. RED MULBERRY POLLEN [Suspect]
     Active Substance: MORUS RUBRA POLLEN
     Route: 058
     Dates: start: 20180723
  12. POLLENS ? TREES, SYCAMORE, AMERICAN EASTERN PLATANUS OCCIDENTALLIS [Suspect]
     Active Substance: PLATANUS OCCIDENTALIS POLLEN
     Route: 058
     Dates: start: 20180723
  13. ANIMAL ALLERGENS, FEATHER MIX [Suspect]
     Active Substance: ANAS PLATYRHYNCHOS FEATHER\ANSER ANSER FEATHER\GALLUS GALLUS FEATHER
     Route: 058
     Dates: start: 20180723
  14. POLLENS ? TREES, CEDAR, MOUNTAIN JUNIPERUS ASHEI [Suspect]
     Active Substance: JUNIPERUS ASHEI POLLEN
     Route: 058
     Dates: start: 20180723
  15. POLLENS ? WEEDS AND GARDEN PLANTS, RAGWEED, MIXED AMBROSIA [Suspect]
     Active Substance: AMBROSIA ARTEMISIIFOLIA POLLEN\AMBROSIA TRIFIDA POLLEN
     Route: 058
     Dates: start: 20180723
  16. MOLDS, RUSTS AND SMUTS, PHOMA BETAE [Suspect]
     Active Substance: PLEOSPORA BETAE
     Route: 058
     Dates: start: 20180723

REACTIONS (4)
  - Eye swelling [Unknown]
  - Respiratory disorder [Recovered/Resolved]
  - Wheezing [Recovered/Resolved]
  - Laryngeal oedema [Unknown]
